FAERS Safety Report 4610860-7 (Version None)
Quarter: 2005Q2

REPORT INFORMATION
  Report Type: 
  Country: None (occurrence: None)
  Receive Date: 20050301
  Receipt Date: 20041104
  Transmission Date: 20051028
  Serious: No
  Sender: FDA-Public Use
  Company Number: MPS1-10297

PATIENT
  Age: 20 Month
  Sex: Female
  Weight: 10.39 kg

DRUGS (5)
  1. ALDURAZYME [Suspect]
     Indication: MUCOPOLYSACCHARIDOSIS IH
     Dosage: 980 UNITS QWK IV
     Route: 042
     Dates: start: 20040903
  2. DIPHENHYDRAMINE HCL [Concomitant]
  3. ACETAMINOPHEN [Concomitant]
  4. SEPTRA [Concomitant]
  5. CYCLOSPORINE [Concomitant]

REACTIONS (1)
  - URTICARIA [None]
